FAERS Safety Report 25599997 (Version 1)
Quarter: 2025Q3

REPORT INFORMATION
  Report Type: Spontaneous
  Country: IN (occurrence: IN)
  Receive Date: 20250724
  Receipt Date: 20250724
  Transmission Date: 20251021
  Serious: No
  Sender: ALKEM
  Company Number: IN-ALKEM LABORATORIES LIMITED-IN-ALKEM-2024-13766

PATIENT
  Age: 24 Year
  Sex: Male

DRUGS (18)
  1. FLUCONAZOLE [Suspect]
     Active Substance: FLUCONAZOLE
     Indication: Body tinea
     Dosage: UNK, ONCE WEEKLY (150-300 MILLIGRAM, WEEKLY)
     Route: 065
  2. FLUCONAZOLE [Suspect]
     Active Substance: FLUCONAZOLE
     Indication: Tinea cruris
     Dosage: 100 MILLIGRAM, QD (FOR 11 WEEKS)
     Route: 065
  3. FLUCONAZOLE [Suspect]
     Active Substance: FLUCONAZOLE
     Indication: Tinea faciei
  4. POSACONAZOLE [Suspect]
     Active Substance: POSACONAZOLE
     Indication: Body tinea
     Dosage: 200 MILLIGRAM, OD (FOR 2 WEEKS)
     Route: 048
  5. POSACONAZOLE [Suspect]
     Active Substance: POSACONAZOLE
     Indication: Tinea cruris
  6. POSACONAZOLE [Suspect]
     Active Substance: POSACONAZOLE
     Indication: Tinea faciei
  7. ITRACONAZOLE [Suspect]
     Active Substance: ITRACONAZOLE
     Indication: Body tinea
     Dosage: UNK, QD (100-200 MILLIGRAM PER DAY)
     Route: 065
  8. ITRACONAZOLE [Suspect]
     Active Substance: ITRACONAZOLE
     Indication: Tinea cruris
     Route: 065
  9. ITRACONAZOLE [Suspect]
     Active Substance: ITRACONAZOLE
     Indication: Tinea faciei
  10. TERBINAFINE [Suspect]
     Active Substance: TERBINAFINE
     Indication: Body tinea
     Dosage: 500 MILLIGRAM, QD (DAILY)
     Route: 065
  11. TERBINAFINE [Suspect]
     Active Substance: TERBINAFINE
     Indication: Tinea cruris
     Dosage: 250 MILLIGRAM, BID (FOR 10 WEEKS)
     Route: 065
  12. TERBINAFINE [Suspect]
     Active Substance: TERBINAFINE
     Indication: Tinea faciei
  13. GRISEOFULVIN [Suspect]
     Active Substance: GRISEOFULVIN
     Indication: Body tinea
     Dosage: 500 MILLIGRAM, QD (DAILY)
     Route: 065
  14. GRISEOFULVIN [Suspect]
     Active Substance: GRISEOFULVIN
     Indication: Tinea cruris
  15. GRISEOFULVIN [Suspect]
     Active Substance: GRISEOFULVIN
     Indication: Tinea faciei
  16. KETOCONAZOLE [Suspect]
     Active Substance: KETOCONAZOLE
     Indication: Body tinea
     Dosage: 200 MILLIGRAM, BID (FOR 6 WEEKS)
     Route: 065
  17. KETOCONAZOLE [Suspect]
     Active Substance: KETOCONAZOLE
     Indication: Tinea cruris
  18. KETOCONAZOLE [Suspect]
     Active Substance: KETOCONAZOLE
     Indication: Tinea faciei

REACTIONS (1)
  - Therapy non-responder [Unknown]
